FAERS Safety Report 5282061-3 (Version None)
Quarter: 2007Q1

REPORT INFORMATION
  Report Type: 
  Country: None (occurrence: None)
  Receive Date: 20070330
  Receipt Date: 20060731
  Transmission Date: 20070707
  Serious: Yes (Hospitalization, Other)
  Sender: FDA-Public Use
  Company Number: US-PFIZER INC-2006095702

PATIENT
  Sex: Female

DRUGS (2)
  1. CELEBREX [Suspect]
     Dates: start: 20000622, end: 20010707
  2. BEXTRA [Suspect]
     Indication: PAIN
     Dates: start: 20040727

REACTIONS (1)
  - CEREBROVASCULAR ACCIDENT [None]
